FAERS Safety Report 7108642-X (Version None)
Quarter: 2010Q4

REPORT INFORMATION
  Report Type: 
  Country: None (occurrence: None)
  Receive Date: 20101115
  Receipt Date: 20101115
  Transmission Date: 20110411
  Serious: No
  Sender: FDA-Public Use
  Company Number: None

PATIENT
  Age: 31 Year
  Sex: Female
  Weight: 215.4586 kg

DRUGS (1)
  1. XENICAL [Suspect]
     Indication: OBESITY
     Dosage: ONCE DAILY

REACTIONS (5)
  - ABDOMINAL PAIN [None]
  - EYELID OEDEMA [None]
  - HEADACHE [None]
  - JAUNDICE [None]
  - NAUSEA [None]
